FAERS Safety Report 8483372-0 (Version None)
Quarter: 2012Q3

REPORT INFORMATION
  Report Type: 
  Country: None (occurrence: None)
  Receive Date: 20120702
  Receipt Date: 20120626
  Transmission Date: 20120928
  Serious: Yes (Other)
  Sender: FDA-Public Use
  Company Number: FR-JNJFOC-20120613195

PATIENT
  Sex: Male

DRUGS (2)
  1. XARELTO [Suspect]
     Indication: HIP ARTHROPLASTY
     Route: 048
     Dates: start: 20120524, end: 20120615
  2. XARELTO [Suspect]
     Indication: THROMBOSIS PROPHYLAXIS
     Route: 048
     Dates: start: 20120524, end: 20120615

REACTIONS (6)
  - APHTHOUS STOMATITIS [None]
  - ASTHENIA [None]
  - FATIGUE [None]
  - DECREASED APPETITE [None]
  - WEIGHT DECREASED [None]
  - GENERAL PHYSICAL HEALTH DETERIORATION [None]
